FAERS Safety Report 5154288-2 (Version None)
Quarter: 2006Q4

REPORT INFORMATION
  Report Type: 
  Country: None (occurrence: None)
  Receive Date: 20061114
  Receipt Date: 20061105
  Transmission Date: 20070319
  Serious: Yes (Other)
  Sender: FDA-Public Use
  Company Number: SI-2006-034429

PATIENT
  Sex: Female

DRUGS (1)
  1. MIRENA (LEVONORGESTRE) IUS [Suspect]
     Indication: CONTRACEPTION
     Dosage: 20 UG, CONT, INTRA-UTERINE
     Route: 015

REACTIONS (1)
  - PSORIATIC ARTHROPATHY [None]
